FAERS Safety Report 18704539 (Version 6)
Quarter: 2021Q2

REPORT INFORMATION
  Report Type: Report from Study
  Country: None (occurrence: CA)
  Receive Date: 20210106
  Receipt Date: 20210608
  Transmission Date: 20210717
  Serious: Yes (Other)
  Sender: FDA-Public Use
  Company Number: CA-ABBVIE-21K-028-3715947-00

PATIENT
  Age: 80 Year
  Sex: Female

DRUGS (4)
  1. RINVOQ [Suspect]
     Active Substance: UPADACITINIB
     Route: 048
  2. PLAQUENIL [Concomitant]
     Active Substance: HYDROXYCHLOROQUINE SULFATE
     Indication: PRODUCT USED FOR UNKNOWN INDICATION
  3. RINVOQ [Suspect]
     Active Substance: UPADACITINIB
     Indication: RHEUMATOID ARTHRITIS
     Route: 048
     Dates: start: 20201209
  4. METHOTREXATE. [Suspect]
     Active Substance: METHOTREXATE
     Indication: PRODUCT USED FOR UNKNOWN INDICATION
     Dosage: SEVEN
     Route: 065

REACTIONS (37)
  - Arrhythmia [Unknown]
  - Burning sensation [Unknown]
  - Pain [Unknown]
  - Asthenia [Not Recovered/Not Resolved]
  - Asthenia [Recovered/Resolved]
  - Ulcer [Unknown]
  - Mobility decreased [Unknown]
  - Cough [Unknown]
  - Pain in extremity [Unknown]
  - Dry throat [Unknown]
  - Fatigue [Unknown]
  - Drug ineffective [Unknown]
  - Lip dry [Recovering/Resolving]
  - Vision blurred [Unknown]
  - Pain of skin [Unknown]
  - Acne [Unknown]
  - Urinary tract infection [Unknown]
  - Headache [Recovered/Resolved]
  - Dyspnoea [Unknown]
  - Peripheral swelling [Recovering/Resolving]
  - Renal pain [Not Recovered/Not Resolved]
  - Dry mouth [Unknown]
  - Hypersomnia [Unknown]
  - Pain in extremity [Recovering/Resolving]
  - Dry skin [Unknown]
  - Impaired quality of life [Unknown]
  - Cough [Recovered/Resolved]
  - Skin cancer [Not Recovered/Not Resolved]
  - Oral discomfort [Unknown]
  - Pain [Unknown]
  - Musculoskeletal disorder [Not Recovered/Not Resolved]
  - Oral herpes [Recovering/Resolving]
  - Chapped lips [Unknown]
  - Malaise [Not Recovered/Not Resolved]
  - Anaemia [Unknown]
  - Dry eye [Unknown]
  - Pruritus [Unknown]

NARRATIVE: CASE EVENT DATE: 2020
